FAERS Safety Report 21910465 (Version 1)
Quarter: 2023Q1

REPORT INFORMATION
  Report Type: Spontaneous
  Country: DE (occurrence: DE)
  Receive Date: 20230125
  Receipt Date: 20230125
  Transmission Date: 20230418
  Serious: Yes (Other)
  Sender: FDA-Public Use
  Company Number: DE-OTSUKA-2022_054594

PATIENT
  Sex: Female
  Weight: 69 kg

DRUGS (4)
  1. OLANZAPINE [Suspect]
     Active Substance: OLANZAPINE
     Indication: Product used for unknown indication
     Dosage: 15 MILLIGRAM, QD
     Route: 065
  2. ARIPIPRAZOLE [Suspect]
     Active Substance: ARIPIPRAZOLE
     Indication: Schizophrenia
     Dosage: 10 MILLIGRAM, QD
     Route: 065
     Dates: start: 2018
  3. ARIPIPRAZOLE [Suspect]
     Active Substance: ARIPIPRAZOLE
     Dosage: 10 MILLIGRAM, QD
     Route: 065
  4. CANNABIS SATIVA SUBSP. INDICA TOP [Suspect]
     Active Substance: CANNABIS SATIVA SUBSP. INDICA TOP
     Indication: Product used for unknown indication
     Dosage: 1-2 G, QD
     Route: 065

REACTIONS (13)
  - Drug abuse [Unknown]
  - Sleep disorder [Unknown]
  - Cognitive disorder [Unknown]
  - Impaired work ability [Unknown]
  - Disturbance in attention [Unknown]
  - Stress [Unknown]
  - Thinking abnormal [Recovered/Resolved]
  - Restlessness [Recovered/Resolved]
  - Weight increased [Unknown]
  - Fatigue [Unknown]
  - Therapy cessation [Unknown]
  - Product dose omission in error [Unknown]
  - Drug ineffective [Unknown]

NARRATIVE: CASE EVENT DATE: 20210401
